FAERS Safety Report 5833794-9 (Version None)
Quarter: 2008Q3

REPORT INFORMATION
  Report Type: 
  Country: None (occurrence: None)
  Receive Date: 20080805
  Receipt Date: 20080728
  Transmission Date: 20090109
  Serious: Yes (Other)
  Sender: FDA-Public Use
  Company Number: US-ASTRAZENECA-2008UW15061

PATIENT
  Sex: Female

DRUGS (1)
  1. PRILOSEC OTC [Suspect]
     Indication: GASTROOESOPHAGEAL REFLUX DISEASE
     Dosage: 1 TABLET TWICE A DAY FOR THREE DAYS
     Route: 048
     Dates: start: 20080723, end: 20080726

REACTIONS (4)
  - ABDOMINAL PAIN [None]
  - BONE DENSITY DECREASED [None]
  - DYSPEPSIA [None]
  - GASTROINTESTINAL HAEMORRHAGE [None]
